FAERS Safety Report 7715857-6 (Version None)
Quarter: 2011Q3

REPORT INFORMATION
  Report Type: 
  Country: None (occurrence: None)
  Receive Date: 20110829
  Receipt Date: 20110829
  Transmission Date: 20111222
  Serious: Yes (Other)
  Sender: FDA-Public Use
  Company Number: None

PATIENT
  Age: 27 Year
  Sex: Male
  Weight: 99.79 kg

DRUGS (1)
  1. EFFEXOR XR [Suspect]
     Indication: PANIC ATTACK
     Dosage: 75MG
     Route: 048
     Dates: start: 20110824, end: 20110825

REACTIONS (6)
  - PANIC ATTACK [None]
  - CONDITION AGGRAVATED [None]
  - FEELING ABNORMAL [None]
  - INSOMNIA [None]
  - ANXIETY [None]
  - APHAGIA [None]
